FAERS Safety Report 6127285-8 (Version None)
Quarter: 2009Q1

REPORT INFORMATION
  Report Type: 
  Country: None (occurrence: None)
  Receive Date: 20090319
  Receipt Date: 20090311
  Transmission Date: 20090719
  Serious: Yes (Hospitalization)
  Sender: FDA-Public Use
  Company Number: 20096418

PATIENT
  Sex: Female

DRUGS (1)
  1. LIORESAL [Suspect]
     Indication: MUSCLE SPASTICITY
     Dosage: 564 MCG, DAILY, INTRATHECAL
     Route: 037

REACTIONS (5)
  - CATHETER RELATED COMPLICATION [None]
  - CLONUS [None]
  - HYPERHIDROSIS [None]
  - IRRITABILITY [None]
  - WITHDRAWAL SYNDROME [None]
